FAERS Safety Report 17244297 (Version 6)
Quarter: 2020Q3

REPORT INFORMATION
  Report Type: Spontaneous
  Country: US (occurrence: US)
  Receive Date: 20200107
  Receipt Date: 20200826
  Transmission Date: 20201102
  Serious: Yes (Other)
  Sender: FDA-Public Use
  Company Number: US-GILEAD-2019-0444758

PATIENT
  Age: 54 Year
  Sex: Male
  Weight: 81.63 kg

DRUGS (51)
  1. TRUVADA [Suspect]
     Active Substance: EMTRICITABINE\TENOFOVIR DISOPROXIL FUMARATE
     Indication: HIV INFECTION
     Dosage: UNK
     Route: 048
     Dates: start: 200604, end: 201405
  2. TRUVADA [Suspect]
     Active Substance: EMTRICITABINE\TENOFOVIR DISOPROXIL FUMARATE
     Dosage: UNK
     Route: 065
     Dates: start: 2006, end: 2017
  3. HYDROCODONE BITARTRATE AND ACETAMINOPHEN [Concomitant]
     Active Substance: ACETAMINOPHEN\HYDROCODONE BITARTRATE
  4. CALCIUM [Concomitant]
     Active Substance: CALCIUM
     Indication: PROPHYLAXIS
     Dosage: UNK
  5. PENICILLIN [PENICILLIN NOS] [Concomitant]
     Active Substance: PENICILLIN
  6. SUSTIVA [Concomitant]
     Active Substance: EFAVIRENZ
     Indication: HIV INFECTION
  7. SULFAMETHOXAZOLE;TRIMIPRAMINE [Concomitant]
  8. METHOCARBAMOL. [Concomitant]
     Active Substance: METHOCARBAMOL
  9. PHENOBARBITAL. [Concomitant]
     Active Substance: PHENOBARBITAL
  10. PREDNISOLONE. [Concomitant]
     Active Substance: PREDNISOLONE
  11. ZOLPIDEM [Concomitant]
     Active Substance: ZOLPIDEM TARTRATE
  12. LIOTHYRONINUM [Concomitant]
  13. BUPROPION HCL [Concomitant]
     Active Substance: BUPROPION HYDROCHLORIDE
  14. NAMENDA [Concomitant]
     Active Substance: MEMANTINE HYDROCHLORIDE
  15. AMPICILLIN [Concomitant]
     Active Substance: AMPICILLIN
  16. SUBOXONE [Concomitant]
     Active Substance: BUPRENORPHINE HYDROCHLORIDE\NALOXONE HYDROCHLORIDE
  17. CYMBALTA [Concomitant]
     Active Substance: DULOXETINE HYDROCHLORIDE
  18. FUROXONE [Concomitant]
     Active Substance: FURAZOLIDONE
  19. PRAZOSIN. [Concomitant]
     Active Substance: PRAZOSIN
  20. LOPRAMIDE [Concomitant]
  21. IBUPROFEN. [Concomitant]
     Active Substance: IBUPROFEN
  22. KALETRA [Concomitant]
     Active Substance: LOPINAVIR\RITONAVIR
     Indication: HIV INFECTION
  23. AZITHROMYCIN ANHYDROUS. [Concomitant]
     Active Substance: AZITHROMYCIN ANHYDROUS
  24. ANASTROZOLE. [Concomitant]
     Active Substance: ANASTROZOLE
  25. TRAMADOL. [Concomitant]
     Active Substance: TRAMADOL
  26. LITHIUM. [Concomitant]
     Active Substance: LITHIUM
  27. METHYLPHENIDATE. [Concomitant]
     Active Substance: METHYLPHENIDATE
  28. AMOXICILLIN. [Concomitant]
     Active Substance: AMOXICILLIN
  29. VIREAD [Suspect]
     Active Substance: TENOFOVIR DISOPROXIL FUMARATE
     Indication: HIV INFECTION
     Route: 048
  30. DIAZEPAM. [Concomitant]
     Active Substance: DIAZEPAM
  31. CIALIS [Concomitant]
     Active Substance: TADALAFIL
  32. NYAMYC [Concomitant]
     Active Substance: NYSTATIN
  33. AMITRIPTYLINE [Concomitant]
     Active Substance: AMITRIPTYLINE
  34. ASPIRIN (E.C.) [Concomitant]
     Active Substance: ASPIRIN
  35. PREDNISONE. [Concomitant]
     Active Substance: PREDNISONE
  36. TETRACYCLINE [Concomitant]
     Active Substance: TETRACYCLINE
  37. LEVOTHYROXINE. [Concomitant]
     Active Substance: LEVOTHYROXINE
  38. TESTOSTERONE. [Concomitant]
     Active Substance: TESTOSTERONE
  39. SEROQUEL XR [Concomitant]
     Active Substance: QUETIAPINE FUMARATE
  40. MAGNESIUM OXIDE. [Concomitant]
     Active Substance: MAGNESIUM OXIDE
  41. GABAPENTIN. [Concomitant]
     Active Substance: GABAPENTIN
  42. ACETAMINOPHEN. [Concomitant]
     Active Substance: ACETAMINOPHEN
  43. BACTRIM [Concomitant]
     Active Substance: SULFAMETHOXAZOLE\TRIMETHOPRIM
  44. ATRIPLA [Suspect]
     Active Substance: EFAVIRENZ\EMTRICITABINE\TENOFOVIR DISOPROXIL FUMARATE
     Indication: HIV INFECTION
     Dosage: UNK
     Route: 048
     Dates: start: 200604, end: 201701
  45. DESCOVY [Concomitant]
     Active Substance: EMTRICITABINE\TENOFOVIR ALAFENAMIDE FUMARATE
     Indication: HIV INFECTION
  46. SYMTUZA [Concomitant]
     Active Substance: COBICISTAT\DARUNAVIR\EMTRICITABINE\TENOFOVIR ALAFENAMIDE
  47. ALPRAZOLAM. [Concomitant]
     Active Substance: ALPRAZOLAM
  48. CORTISONE [Concomitant]
     Active Substance: CORTISONE
  49. CELEBREX [Concomitant]
     Active Substance: CELECOXIB
  50. DILANTIN [Concomitant]
     Active Substance: PHENYTOIN
  51. TRIUMEQ [Concomitant]
     Active Substance: ABACAVIR SULFATE\DOLUTEGRAVIR SODIUM\LAMIVUDINE
     Indication: HIV INFECTION

REACTIONS (13)
  - Osteopenia [Not Recovered/Not Resolved]
  - Fracture [Not Recovered/Not Resolved]
  - Osteoporosis [Unknown]
  - Tooth loss [Unknown]
  - Bone density decreased [Unknown]
  - Pain [Unknown]
  - Renal failure [Unknown]
  - Emotional distress [Unknown]
  - Anhedonia [Unknown]
  - Bone density abnormal [Unknown]
  - Anxiety [Unknown]
  - Economic problem [Unknown]
  - Depression [Unknown]

NARRATIVE: CASE EVENT DATE: 2006
